FAERS Safety Report 10587553 (Version 1)
Quarter: 2014Q4

REPORT INFORMATION
  Report Type: Spontaneous
  Country: GB (occurrence: GB)
  Receive Date: 20141117
  Receipt Date: 20141117
  Transmission Date: 20150529
  Serious: Yes (Disabling, Other)
  Sender: FDA-Public Use
  Company Number: GB-TEVA-521143ISR

PATIENT
  Age: 56 Year
  Sex: Female
  Weight: 98 kg

DRUGS (8)
  1. AMIODARONE [Suspect]
     Active Substance: AMIODARONE
     Route: 048
     Dates: start: 20140711, end: 20140803
  2. METFORMIN [Concomitant]
     Active Substance: METFORMIN HYDROCHLORIDE
  3. WARFARIN [Concomitant]
     Active Substance: WARFARIN
  4. AMIODARONE [Suspect]
     Active Substance: AMIODARONE
     Indication: HEART RATE INCREASED
     Dosage: 1X3 A DAY TIL 3RD JUL, 1X2 TIL 10TH JUL, THEN 1 X1 THEREAFTER
     Route: 048
     Dates: start: 20140626, end: 20140703
  5. BISOPROLOL [Concomitant]
     Active Substance: BISOPROLOL
  6. AMIODARONE [Suspect]
     Active Substance: AMIODARONE
     Route: 048
     Dates: start: 20140704, end: 20140710
  7. SIMVASTATIN. [Concomitant]
     Active Substance: SIMVASTATIN
  8. PROPANOL [Concomitant]
     Active Substance: PROPRANOLOL HYDROCHLORIDE

REACTIONS (12)
  - Secretion discharge [Unknown]
  - Heart rate increased [Recovered/Resolved]
  - Blood pressure increased [Recovered/Resolved]
  - Decreased appetite [Recovered/Resolved]
  - Abdominal pain upper [Recovered/Resolved]
  - Oropharyngeal pain [Recovered/Resolved]
  - Insomnia [Recovered/Resolved]
  - Abnormal loss of weight [Recovered/Resolved]
  - Back pain [Recovered/Resolved]
  - Cough [Unknown]
  - Wheezing [Recovered/Resolved]
  - Fatigue [Recovered/Resolved]

NARRATIVE: CASE EVENT DATE: 20140630
